FAERS Safety Report 6241668-7 (Version None)
Quarter: 2009Q2

REPORT INFORMATION
  Report Type: 
  Country: None (occurrence: None)
  Receive Date: 20090623
  Receipt Date: 20070530
  Transmission Date: 20091009
  Serious: Yes (Other)
  Sender: FDA-Public Use
  Company Number: CA-ROCHE-500306

PATIENT
  Age: 68 Year
  Sex: Female

DRUGS (9)
  1. VALGANCICLOVIR HCL [Interacting]
     Indication: CYTOMEGALOVIRUS ENTERITIS
     Route: 065
  2. SULFAMETHOXAZOLE AND TRIMETHOPRIM [Suspect]
     Dosage: REPORTED AS TRIMETHOPRIM/SULFAMETHOXAZOLE 800/160 MG
     Route: 065
  3. DIDANOSINE [Interacting]
     Indication: HIV INFECTION
     Route: 065
  4. LAMIVUDINE [Suspect]
     Indication: HIV INFECTION
     Route: 065
  5. LOPINAVIR [Suspect]
     Indication: HIV INFECTION
     Route: 065
  6. ZIDOVUDINE [Suspect]
     Indication: HIV INFECTION
     Route: 065
  7. RITONAVIR [Suspect]
     Indication: HIV INFECTION
     Route: 065
  8. ABACAVIR [Concomitant]
     Indication: HIV INFECTION
  9. DAPSONE [Concomitant]
     Indication: PROPHYLAXIS

REACTIONS (3)
  - CD4 LYMPHOCYTES DECREASED [None]
  - DRUG INTERACTION [None]
  - PANCYTOPENIA [None]
